FAERS Safety Report 6093395-7 (Version None)
Quarter: 2009Q1

REPORT INFORMATION
  Report Type: 
  Country: None (occurrence: None)
  Receive Date: 20090223
  Receipt Date: 20090223
  Transmission Date: 20090719
  Serious: Yes (Hospitalization)
  Sender: FDA-Public Use
  Company Number: None

PATIENT
  Age: 75 Year
  Sex: Male
  Weight: 70.3075 kg

DRUGS (2)
  1. NAMENDA [Suspect]
     Indication: DEMENTIA
     Dosage: 10MG BID PO ABOUT 2-3 WEEKS
     Route: 048
  2. NAMENDA [Suspect]
     Indication: PROPHYLAXIS
     Dosage: 10MG BID PO ABOUT 2-3 WEEKS
     Route: 048

REACTIONS (6)
  - AGGRESSION [None]
  - ALCOHOL INTERACTION [None]
  - ALCOHOL USE [None]
  - IRRITABILITY [None]
  - OVERDOSE [None]
  - PNEUMONIA ASPIRATION [None]
